FAERS Safety Report 10320515 (Version 2)
Quarter: 2015Q1

REPORT INFORMATION
  Report Type: Other
  Country: US (occurrence: US)
  Receive Date: 20140719
  Receipt Date: 20150323
  Transmission Date: 20150720
  Serious: Yes (Hospitalization, Other)
  Sender: FDA-Public Use
  Company Number: US-GSKPPD-2014GSK039007

PATIENT
  Age: 56 Year
  Sex: Female

DRUGS (6)
  1. AMLODIPINE [Concomitant]
     Active Substance: AMLODIPINE BESYLATE
     Route: 048
     Dates: end: 20101001
  2. LASIX [Concomitant]
     Active Substance: FUROSEMIDE
     Route: 048
  3. NITROGLYCERIN. [Concomitant]
     Active Substance: NITROGLYCERIN
     Route: 060
  4. ALDACTONE [Concomitant]
     Active Substance: SPIRONOLACTONE
     Route: 048
  5. COREG [Concomitant]
     Active Substance: CARVEDILOL
     Route: 048
  6. AVANDIA [Suspect]
     Active Substance: ROSIGLITAZONE MALEATE
     Indication: DIABETES MELLITUS
     Dosage: DATES OF AVANDIA USE COULD NOT BE CONFIRMED IN RECORDS REVIEWED
     Route: 048
     Dates: end: 20101001

REACTIONS (1)
  - Cardiac failure congestive [Recovered/Resolved]

NARRATIVE: CASE EVENT DATE: 20100927
